FAERS Safety Report 12819555 (Version 1)
Quarter: 2016Q4

REPORT INFORMATION
  Report Type: Report from Study
  Country: US (occurrence: US)
  Receive Date: 20161006
  Receipt Date: 20161006
  Transmission Date: 20170207
  Serious: No
  Sender: FDA-Public Use
  Company Number: US-AMGEN-USASL2016010866

PATIENT
  Age: 81 Year
  Sex: Female

DRUGS (5)
  1. CALCIUM + VITAMIN D                /01483701/ [Concomitant]
     Active Substance: CALCIUM\VITAMIN D
  2. TRAZODONE                          /00447702/ [Concomitant]
     Active Substance: TRAZODONE HYDROCHLORIDE
  3. MOBIC [Concomitant]
     Active Substance: MELOXICAM
  4. CITALOPRAM [Concomitant]
     Active Substance: CITALOPRAM HYDROBROMIDE
  5. PROLIA [Suspect]
     Active Substance: DENOSUMAB
     Indication: OSTEOPOROSIS
     Dosage: UNK, Q12MO
     Route: 065

REACTIONS (1)
  - Intentional product misuse [Unknown]
